FAERS Safety Report 17518876 (Version 3)
Quarter: 2024Q4

REPORT INFORMATION
  Report Type: Spontaneous
  Country: DE (occurrence: DE)
  Receive Date: 20200310
  Receipt Date: 20241017
  Transmission Date: 20250115
  Serious: Yes (Life-Threatening, Hospitalization, Other)
  Sender: AUROBINDO
  Company Number: DE-STADA-195430

PATIENT
  Age: 42 Year
  Sex: Male

DRUGS (4)
  1. LEVOFLOXACIN [Suspect]
     Active Substance: LEVOFLOXACIN
     Indication: Evidence based treatment
     Dosage: UNK
     Route: 065
  2. LEVOFLOXACIN [Suspect]
     Active Substance: LEVOFLOXACIN
     Indication: Bordetella infection
     Dosage: UNK
     Route: 065
  3. MEROPENEM [Suspect]
     Active Substance: MEROPENEM
     Indication: Evidence based treatment
     Dosage: 1 GRAM (0.25 DAY)
     Route: 042
  4. PIPERACILLIN AND TAZOBACTAM [Suspect]
     Active Substance: PIPERACILLIN SODIUM\TAZOBACTAM SODIUM
     Indication: Evidence based treatment
     Dosage: 4.5 GRAM (0.25 DAY)
     Route: 042

REACTIONS (7)
  - Anaphylactic reaction [Unknown]
  - Tachycardia [Unknown]
  - Hypotension [Unknown]
  - Drug intolerance [Unknown]
  - Dermatitis allergic [Unknown]
  - Pruritus [Unknown]
  - Rash [Unknown]
